FAERS Safety Report 9745062 (Version 2)
Quarter: 2014Q1

REPORT INFORMATION
  Report Type: Spontaneous
  Country: US (occurrence: US)
  Receive Date: 20131211
  Receipt Date: 20140109
  Transmission Date: 20141002
  Serious: Yes (Hospitalization)
  Sender: FDA-Public Use
  Company Number: US-BEH-2013039390

PATIENT
  Age: 54 Year
  Sex: Female
  Weight: 88 kg

DRUGS (37)
  1. ZEMAIRA [Suspect]
     Indication: ALPHA-1 ANTI-TRYPSIN DEFICIENCY
     Route: 042
  2. ZEMAIRA [Suspect]
     Dosage: MAX RATE 6.8 ML PER MIN
     Route: 042
     Dates: start: 20140103, end: 20140103
  3. LASIX [Concomitant]
  4. NASOGEL SALINE [Concomitant]
  5. BECLOMETHASONE [Concomitant]
  6. OXYGEN [Concomitant]
  7. SINGULAIR [Concomitant]
  8. ZOLPIDEM TARTRATE [Concomitant]
  9. REVATIO [Concomitant]
  10. CALCIUM [Concomitant]
  11. ADVIL COLD + SINUS [Concomitant]
  12. PROAIR [Concomitant]
  13. STOOL SOFTENER [Concomitant]
  14. DIPHENHYDRAMINE [Concomitant]
  15. HEPARIN [Concomitant]
  16. SODIUM CHLORIDE [Concomitant]
  17. LEVOFLOXACIN [Concomitant]
  18. PSEUDOEPHEDRINE [Concomitant]
  19. CYMBALTA [Concomitant]
  20. PREDNISONE [Concomitant]
  21. LYRICA [Concomitant]
  22. VICODIN [Concomitant]
  23. ADVAIR [Concomitant]
  24. NEXIUM [Concomitant]
  25. DOXYCYCLINE [Concomitant]
  26. ALBUTEROL [Concomitant]
  27. SPIRIVA [Concomitant]
  28. FLEXERIL [Concomitant]
  29. PREVACID [Concomitant]
  30. GLUCOSAMINE-CHONDROITIN [Concomitant]
  31. VITAMIN D3 [Concomitant]
  32. EPIPEN [Concomitant]
  33. TRAMADOL [Concomitant]
  34. IBUPROFEN [Concomitant]
  35. AZITHROMYCIN [Concomitant]
  36. LASIX [Concomitant]
  37. POTASSIUM CHLORIDE [Concomitant]

REACTIONS (10)
  - Pulmonary embolism [Unknown]
  - Chest discomfort [Unknown]
  - Chest pain [Unknown]
  - Dyspnoea [Unknown]
  - Hypersensitivity [Unknown]
  - Pain [Unknown]
  - Chills [Unknown]
  - Dizziness [Unknown]
  - Headache [Unknown]
  - Infusion related reaction [Unknown]
